FAERS Safety Report 6325247-9 (Version None)
Quarter: 2009Q3

REPORT INFORMATION
  Report Type: 
  Country: None (occurrence: None)
  Receive Date: 20090824
  Receipt Date: 20090624
  Transmission Date: 20100115
  Serious: No
  Sender: FDA-Public Use
  Company Number: US-ABBOTT-09P-163-0582402-00

PATIENT
  Sex: Male
  Weight: 80.358 kg

DRUGS (10)
  1. NIASPAN [Suspect]
     Indication: HIGH DENSITY LIPOPROTEIN DECREASED
     Route: 048
     Dates: start: 20090401
  2. PLAVIX [Concomitant]
     Indication: ANTICOAGULANT THERAPY
     Route: 048
  3. COREG [Concomitant]
     Indication: CARDIAC DISORDER
     Route: 048
  4. LISINOPRIL [Concomitant]
     Indication: CARDIAC DISORDER
     Route: 048
  5. CRESTOR [Concomitant]
     Indication: BLOOD CHOLESTEROL INCREASED
     Route: 048
  6. LAMASIL [Concomitant]
     Indication: NAIL INFECTION
     Route: 048
  7. ASPIRIN [Concomitant]
     Indication: PROPHYLAXIS
     Route: 048
  8. CHANTIX [Concomitant]
     Indication: EX-TOBACCO USER
     Route: 048
  9. ADVAIR HFA [Concomitant]
     Indication: EMPHYSEMA
     Dosage: 250/50 MG 1 PUFF
     Route: 055
  10. COMBIVENT [Concomitant]
     Indication: EMPHYSEMA
     Route: 055

REACTIONS (5)
  - GASTRIC ULCER [None]
  - HIGH DENSITY LIPOPROTEIN INCREASED [None]
  - HOT FLUSH [None]
  - OESOPHAGEAL ULCER [None]
  - PRURITUS [None]
